FAERS Safety Report 6026160-7 (Version None)
Quarter: 2008Q4

REPORT INFORMATION
  Report Type: 
  Country: None (occurrence: None)
  Receive Date: 20081230
  Receipt Date: 20081219
  Transmission Date: 20090506
  Serious: Yes (Other)
  Sender: FDA-Public Use
  Company Number: GXKR2008GB12108

PATIENT
  Age: 45 Year
  Sex: Female

DRUGS (2)
  1. VENLAFAXINE (NGX) (VENLAFIXIN [Suspect]
     Dosage: 75 MG, QD, ORAL
     Route: 049
  2. TOPAMAX [Suspect]
     Indication: MIGRAINE
     Dosage: 75 MG, QD, ORAL

REACTIONS (2)
  - DRUG INTERACTION [None]
  - ELECTROCARDIOGRAM T WAVE ABNORMAL [None]
